FAERS Safety Report 13623797 (Version 1)
Quarter: 2017Q2

REPORT INFORMATION
  Report Type: Spontaneous
  Country: US (occurrence: US)
  Receive Date: 20170607
  Receipt Date: 20170607
  Transmission Date: 20170830
  Serious: Yes (Other)
  Sender: FDA-Public Use
  Company Number: US-GLAXOSMITHKLINE-US2017086343

PATIENT
  Age: 83 Year
  Sex: Female

DRUGS (8)
  1. ADVAIR DISKUS [Suspect]
     Active Substance: FLUTICASONE PROPIONATE\SALMETEROL XINAFOATE
     Dosage: 1 PUFF(S), QD
     Route: 055
     Dates: start: 2016
  2. ATENOLOL. [Concomitant]
     Active Substance: ATENOLOL
  3. ULORIC [Concomitant]
     Active Substance: FEBUXOSTAT
  4. CRESTOR [Concomitant]
     Active Substance: ROSUVASTATIN CALCIUM
  5. LEVOTHYROXIN [Concomitant]
     Active Substance: LEVOTHYROXINE
  6. MONTELUKAST [Concomitant]
     Active Substance: MONTELUKAST SODIUM
  7. PANTOPRAZOLE [Concomitant]
     Active Substance: PANTOPRAZOLE
  8. ADVAIR DISKUS [Suspect]
     Active Substance: FLUTICASONE PROPIONATE\SALMETEROL XINAFOATE
     Indication: ASTHMA
     Dosage: 1 PUFF(S), BID
     Route: 055
     Dates: end: 2016

REACTIONS (4)
  - Aortic stenosis [Not Recovered/Not Resolved]
  - Underdose [Unknown]
  - Dyspnoea [Not Recovered/Not Resolved]
  - Incorrect product storage [Unknown]

NARRATIVE: CASE EVENT DATE: 201705
